FAERS Safety Report 8018366-2 (Version None)
Quarter: 2012Q1

REPORT INFORMATION
  Report Type: 
  Country: None (occurrence: None)
  Receive Date: 20120103
  Receipt Date: 20111226
  Transmission Date: 20120608
  Serious: Yes (Other)
  Sender: FDA-Public Use
  Company Number: CA-PFIZER INC-2011056542

PATIENT
  Age: 81 Year
  Sex: Male

DRUGS (5)
  1. XALATAN [Suspect]
     Indication: CATARACT
     Dosage: 1 DROP/EYE 1X/DAILY IN THE EVENING
     Route: 047
     Dates: start: 20110101
  2. FML [Concomitant]
     Dosage: UNK
  3. ZYMAR [Concomitant]
     Dosage: UNK
  4. VOLTAREN [Concomitant]
     Dosage: UNK
     Dates: end: 20110301
  5. INDERAL [Concomitant]
     Indication: BLOOD PRESSURE
     Dosage: UNK

REACTIONS (4)
  - CANDIDIASIS [None]
  - SKIN DISCOLOURATION [None]
  - EYE SWELLING [None]
  - DYSGEUSIA [None]
